FAERS Safety Report 24181198 (Version 2)
Quarter: 2024Q3

REPORT INFORMATION
  Report Type: Spontaneous
  Country: US (occurrence: US)
  Receive Date: 20240806
  Receipt Date: 20240809
  Transmission Date: 20241016
  Serious: No
  Sender: SUNOVION
  Company Number: US-MYOVANT SCIENCES GMBH-2024MYSCI0600527

PATIENT

DRUGS (1)
  1. ORGOVYX [Suspect]
     Active Substance: RELUGOLIX
     Indication: Prostate cancer
     Dosage: UNK, QD
     Route: 065
     Dates: end: 20240612

REACTIONS (3)
  - Cold sweat [Unknown]
  - Fatigue [Unknown]
  - Hot flush [Unknown]
